FAERS Safety Report 13957029 (Version 3)
Quarter: 2018Q2

REPORT INFORMATION
  Report Type: Spontaneous
  Country: US (occurrence: US)
  Receive Date: 20170911
  Receipt Date: 20180615
  Transmission Date: 20180711
  Serious: No
  Sender: FDA-Public Use
  Company Number: US-ASTRAZENECA-2014SE64014

PATIENT
  Age: 73 Year
  Sex: Female
  Weight: 59 kg

DRUGS (15)
  1. NEXIUM 24HR [Suspect]
     Active Substance: ESOMEPRAZOLE MAGNESIUM
     Indication: OESOPHAGEAL DISORDER
     Dosage: 44.6 MG, 2X/DAY (22.3MG 2 CAPSULES IN THE MORNING AND 22.3MG 2 CAPSULES IN THE EVENING), UNKNOWN
     Route: 048
  2. NEXIUM 24HR [Suspect]
     Active Substance: ESOMEPRAZOLE MAGNESIUM
     Indication: GASTROOESOPHAGEAL REFLUX DISEASE
     Dosage: 4 DF, DAILY (2 CAPSULES IN THE MORNING AND 2 CAPSULES IN THE EVENING)(4 CAPSULES A DAY)
     Route: 048
  3. NEXIUM 24HR [Suspect]
     Active Substance: ESOMEPRAZOLE MAGNESIUM
     Indication: OESOPHAGEAL DISORDER
     Dosage: 22.3 MG, 2X/DAY (1 IN THE MORNING AND 1 IN THE EVENING); UNKNOWN
     Route: 048
  4. NEXIUM 24HR [Suspect]
     Active Substance: ESOMEPRAZOLE MAGNESIUM
     Indication: GASTROOESOPHAGEAL REFLUX DISEASE
     Dosage: 44.6 MG, 2X/DAY (22.3MG 2 CAPSULES IN THE MORNING AND 22.3MG 2 CAPSULES IN THE EVENING), UNKNOWN
     Route: 048
  5. NEXIUM 24HR [Suspect]
     Active Substance: ESOMEPRAZOLE MAGNESIUM
     Indication: HERNIA
     Dosage: 44.6 MG, 2X/DAY (22.3MG 2 CAPSULES IN THE MORNING AND 22.3MG 2 CAPSULES IN THE EVENING), UNKNOWN
     Route: 048
  6. NEXIUM 24HR [Suspect]
     Active Substance: ESOMEPRAZOLE MAGNESIUM
     Indication: OESOPHAGEAL DISORDER
     Dosage: 4 DF, DAILY (2 CAPSULES IN THE MORNING AND 2 CAPSULES IN THE EVENING)(4 CAPSULES A DAY)
     Route: 048
  7. NEXIUM 24HR [Suspect]
     Active Substance: ESOMEPRAZOLE MAGNESIUM
     Indication: IMPAIRED GASTRIC EMPTYING
     Dosage: 22.3 MG, 2X/DAY (1 IN THE MORNING AND 1 IN THE EVENING); UNKNOWN
     Route: 048
  8. NEXIUM 24HR [Suspect]
     Active Substance: ESOMEPRAZOLE MAGNESIUM
     Indication: HERNIA
     Dosage: 4 DF, DAILY (2 CAPSULES IN THE MORNING AND 2 CAPSULES IN THE EVENING)(4 CAPSULES A DAY)
     Route: 048
  9. NEXIUM 24HR [Suspect]
     Active Substance: ESOMEPRAZOLE MAGNESIUM
     Indication: IMPAIRED GASTRIC EMPTYING
     Dosage: 4 DF, DAILY (2 CAPSULES IN THE MORNING AND 2 CAPSULES IN THE EVENING)(4 CAPSULES A DAY)
     Route: 048
  10. NEXIUM 24HR [Suspect]
     Active Substance: ESOMEPRAZOLE MAGNESIUM
     Indication: OESOPHAGEAL DISORDER
     Dosage: 22.3 MG, 2X/DAY (1 IN THE MORNING AND 1 IN THE EVENING); UNKNOWN
     Route: 048
  11. NEXIUM 24HR [Suspect]
     Active Substance: ESOMEPRAZOLE MAGNESIUM
     Indication: GASTROOESOPHAGEAL REFLUX DISEASE
     Dosage: 22.3 MG, 2X/DAY (1 IN THE MORNING AND 1 IN THE EVENING); UNKNOWN
     Route: 048
  12. NEXIUM 24HR [Suspect]
     Active Substance: ESOMEPRAZOLE MAGNESIUM
     Indication: OESOPHAGEAL DISORDER
     Dosage: 44.6 MG, 2X/DAY (22.3MG 2 CAPSULES IN THE MORNING AND 22.3MG 2 CAPSULES IN THE EVENING), UNKNOWN
     Route: 048
  13. NEXIUM 24HR [Suspect]
     Active Substance: ESOMEPRAZOLE MAGNESIUM
     Indication: IMPAIRED GASTRIC EMPTYING
     Dosage: 44.6 MG, 2X/DAY (22.3MG 2 CAPSULES IN THE MORNING AND 22.3MG 2 CAPSULES IN THE EVENING), UNKNOWN
     Route: 048
  14. NEXIUM 24HR [Suspect]
     Active Substance: ESOMEPRAZOLE MAGNESIUM
     Indication: HERNIA
     Dosage: 22.3 MG, 2X/DAY (1 IN THE MORNING AND 1 IN THE EVENING); UNKNOWN
     Route: 048
  15. NEXIUM 24HR [Suspect]
     Active Substance: ESOMEPRAZOLE MAGNESIUM
     Indication: OESOPHAGEAL DISORDER
     Dosage: 4 DF, DAILY (2 CAPSULES IN THE MORNING AND 2 CAPSULES IN THE EVENING)(4 CAPSULES A DAY)
     Route: 048

REACTIONS (7)
  - Malaise [Not Recovered/Not Resolved]
  - Poor quality drug administered [Unknown]
  - Overdose [Unknown]
  - Intentional product misuse [Not Recovered/Not Resolved]
  - Drug ineffective for unapproved indication [Unknown]
  - Product physical issue [Unknown]
  - Cough [Unknown]

NARRATIVE: CASE EVENT DATE: 20170823
